FAERS Safety Report 7016946-4 (Version None)
Quarter: 2010Q3

REPORT INFORMATION
  Report Type: 
  Country: None (occurrence: None)
  Receive Date: 20100927
  Receipt Date: 20100915
  Transmission Date: 20110219
  Serious: Yes (Hospitalization)
  Sender: FDA-Public Use
  Company Number: FR-PFIZER INC-2010116373

PATIENT
  Age: 63 Year
  Sex: Female

DRUGS (15)
  1. SOLU-MEDROL [Suspect]
     Dosage: UNK
     Route: 042
     Dates: start: 20100802, end: 20100802
  2. TAXOTERE [Suspect]
     Dosage: 120MG, CYCLIC
     Route: 042
     Dates: start: 20100621, end: 20100621
  3. SOLUPRED [Suspect]
     Dosage: 50 MG, 1X/DAY
     Route: 048
     Dates: start: 20100802, end: 20100804
  4. ZOFRAN [Suspect]
     Dosage: UNK
     Route: 042
     Dates: start: 20100802, end: 20100803
  5. TAHOR [Concomitant]
  6. KARDEGIC [Concomitant]
     Dosage: UNK
     Route: 048
  7. KETOPROFEN [Concomitant]
     Dosage: 150 MG, 2X/DAY
     Route: 048
  8. ACEBUTOLOL [Concomitant]
     Dosage: 100 MG, 2X/DAY
  9. TRAMADOL [Concomitant]
     Dosage: UNK
  10. COLTRAMYL [Concomitant]
     Dosage: 8 MG, 2X/DAY
  11. KEPPRA [Concomitant]
     Dosage: UNK
  12. NEXIUM [Concomitant]
     Dosage: UNK
  13. DIFFU K [Concomitant]
     Dosage: UNK
  14. ZOLPIDEM TARTRATE [Concomitant]
     Dosage: UNK
  15. PARACETAMOL [Concomitant]
     Dosage: 1 TO 4 G DAILY

REACTIONS (3)
  - DIARRHOEA [None]
  - NEUTROPENIA [None]
  - RECTAL HAEMORRHAGE [None]
